FAERS Safety Report 4339831-5 (Version None)
Quarter: 2004Q2

REPORT INFORMATION
  Report Type: 
  Country: None (occurrence: None)
  Receive Date: 20040412
  Receipt Date: 20040330
  Transmission Date: 20050107
  Serious: Yes (Other)
  Sender: FDA-Public Use
  Company Number: US071676

PATIENT
  Age: 30 Year
  Sex: Male

DRUGS (1)
  1. ENBREL [Suspect]
     Indication: ANKYLOSING SPONDYLITIS
     Dosage: 25 MG, 2 IN 1 WEEKS, SC
     Route: 058
     Dates: start: 20030801, end: 20040201

REACTIONS (1)
  - RETINAL HAEMORRHAGE [None]
